FAERS Safety Report 5809404-3 (Version None)
Quarter: 2008Q3

REPORT INFORMATION
  Report Type: 
  Country: None (occurrence: None)
  Receive Date: 20080714
  Receipt Date: 20080702
  Transmission Date: 20090109
  Serious: Yes (Other)
  Sender: FDA-Public Use
  Company Number: JO-GENENTECH-261664

PATIENT
  Age: 30 Year
  Sex: Female

DRUGS (8)
  1. MABTHERA [Suspect]
     Indication: LUPUS NEPHRITIS
     Dosage: 1 G, UNK
     Route: 042
     Dates: start: 20080429, end: 20080514
  2. IMURAN [Concomitant]
     Indication: DRUG USE FOR UNKNOWN INDICATION
     Dosage: UNK
     Dates: start: 20040101
  3. CORTICOIDS NOS [Concomitant]
     Indication: SYSTEMIC LUPUS ERYTHEMATOSUS
     Dosage: UNK
     Dates: start: 20080429, end: 20080429
  4. ANTIHISTAMINE NOS [Concomitant]
     Indication: PREMEDICATION
     Dosage: UNK
     Dates: start: 20080429, end: 20080429
  5. ACETAMINOPHEN [Concomitant]
     Indication: PREMEDICATION
     Dates: start: 20080429, end: 20080429
  6. PREDNISONE TAB [Concomitant]
     Indication: DRUG USE FOR UNKNOWN INDICATION
     Dosage: UNK
     Dates: start: 20000101
  7. MICARDIS HCT [Concomitant]
     Indication: DRUG USE FOR UNKNOWN INDICATION
     Dosage: UNK
  8. NORVASC [Concomitant]
     Indication: DRUG USE FOR UNKNOWN INDICATION
     Dosage: UNK

REACTIONS (4)
  - FATIGUE [None]
  - INTERSTITIAL LUNG DISEASE [None]
  - MUSCULOSKELETAL STIFFNESS [None]
  - WHITE BLOOD CELL COUNT DECREASED [None]
